FAERS Safety Report 8171053-2 (Version None)
Quarter: 2012Q1

REPORT INFORMATION
  Report Type: 
  Country: None (occurrence: None)
  Receive Date: 20120228
  Receipt Date: 20120213
  Transmission Date: 20120608
  Serious: Yes (Other)
  Sender: FDA-Public Use
  Company Number: PHHY2012JP015075

PATIENT
  Age: 37 Year
  Sex: Female

DRUGS (8)
  1. IMATINIB MESYLATE [Suspect]
     Indication: CHRONIC MYELOID LEUKAEMIA
     Dosage: 600 MG, UNK
     Route: 048
  2. METHOTREXATE [Suspect]
     Dosage: 10 MG/M2, UNK
  3. PREDNISOLONE [Concomitant]
  4. CYCLOSPORINE [Suspect]
     Dosage: 80 MG, UNK
  5. IMATINIB MESYLATE [Suspect]
     Dosage: UNK UKN, UNK
     Route: 048
     Dates: start: 20090630
  6. CYCLOSPORINE [Suspect]
     Dosage: 60 MG, UNK
  7. METHOTREXATE [Suspect]
     Dosage: 15 MG/M2, UNK
  8. METHOTREXATE [Suspect]
     Dosage: 10 MG/M2, UNK

REACTIONS (5)
  - CYTOMEGALOVIRUS INFECTION [None]
  - HEPATIC FUNCTION ABNORMAL [None]
  - ACUTE GRAFT VERSUS HOST DISEASE IN SKIN [None]
  - SUBDURAL HAEMATOMA [None]
  - CHRONIC GRAFT VERSUS HOST DISEASE [None]
